FAERS Safety Report 9530779 (Version 4)
Quarter: 2013Q4

REPORT INFORMATION
  Report Type: Report from Study
  Country: RO (occurrence: RO)
  Receive Date: 20130918
  Receipt Date: 20131213
  Transmission Date: 20140711
  Serious: Yes (Hospitalization)
  Sender: FDA-Public Use
  Company Number: RO-ROCHE-1272898

PATIENT
  Age: 42 Year
  Sex: Female
  Weight: 52 kg

DRUGS (5)
  1. RIBAVIRIN [Suspect]
     Indication: CHRONIC HEPATITIS C
     Route: 048
     Dates: start: 20130412, end: 20130830
  2. BLINDED BI 207127 [Suspect]
     Indication: CHRONIC HEPATITIS C
     Route: 048
     Dates: start: 20130412, end: 20130830
  3. BLINDED BI 201335 [Suspect]
     Indication: CHRONIC HEPATITIS C
     Route: 048
     Dates: start: 20130412, end: 20130830
  4. ALPHA D3 [Concomitant]
     Indication: HYPERPARATHYROIDISM
     Route: 065
     Dates: start: 20110305
  5. ALPHA D3 [Concomitant]
     Route: 065
     Dates: start: 20130408, end: 20131014

REACTIONS (1)
  - Psychotic disorder [Not Recovered/Not Resolved]
